FAERS Safety Report 12392925 (Version 1)
Quarter: 2016Q2

REPORT INFORMATION
  Report Type: Report from Study
  Country: KE (occurrence: KE)
  Receive Date: 20160523
  Receipt Date: 20160523
  Transmission Date: 20160815
  Serious: Yes (Hospitalization)
  Sender: FDA-Public Use
  Company Number: PHHY2014KE059147

PATIENT
  Sex: Female

DRUGS (1)
  1. GLIVEC [Suspect]
     Active Substance: IMATINIB MESYLATE
     Indication: CHRONIC MYELOID LEUKAEMIA
     Dosage: 800 MG, UNK
     Route: 065

REACTIONS (7)
  - Malaria [Unknown]
  - Haemoglobin decreased [Unknown]
  - Pyrexia [Unknown]
  - Headache [Unknown]
  - Malaise [Unknown]
  - White blood cell count decreased [Unknown]
  - Oral pain [Unknown]
